FAERS Safety Report 12779597 (Version 1)
Quarter: 2016Q3

REPORT INFORMATION
  Report Type: Spontaneous
  Country: US (occurrence: US)
  Receive Date: 20160924
  Receipt Date: 20160924
  Transmission Date: 20161109
  Serious: Yes (Life-Threatening, Hospitalization, Disabling)
  Sender: FDA-Public Use
  Company Number: None

PATIENT
  Age: 33 Year
  Sex: Female
  Weight: 82.8 kg

DRUGS (1)
  1. ZYFLO [Suspect]
     Active Substance: ZILEUTON
     Indication: MULTIPLE ALLERGIES
     Route: 048
     Dates: start: 20120321, end: 20120831

REACTIONS (3)
  - Depression [None]
  - Suicidal ideation [None]
  - Confusional state [None]

NARRATIVE: CASE EVENT DATE: 20120321
